FAERS Safety Report 22093675 (Version 1)
Quarter: 2023Q1

REPORT INFORMATION
  Report Type: Spontaneous
  Country: US (occurrence: US)
  Receive Date: 20230314
  Receipt Date: 20230314
  Transmission Date: 20230417
  Serious: Yes (Other)
  Sender: FDA-Public Use
  Company Number: US-AMRYT PHARMACEUTICALS DAC-AEGR006320

PATIENT

DRUGS (1)
  1. MYCAPSSA [Suspect]
     Active Substance: OCTREOTIDE
     Indication: Product used for unknown indication
     Route: 048

REACTIONS (1)
  - Colectomy [Unknown]
